FAERS Safety Report 5263158-0 (Version None)
Quarter: 2007Q1

REPORT INFORMATION
  Report Type: 
  Country: None (occurrence: None)
  Receive Date: 20061219
  Receipt Date: 20061106
  Transmission Date: 20070707
  Serious: No
  Sender: FDA-Public Use
  Company Number: 2006US002529

PATIENT
  Age: 68 Year
  Sex: Female

DRUGS (7)
  1. VESICARE [Suspect]
     Indication: CYSTITIS INTERSTITIAL
     Dosage: 10 MG, UID/QD, ORAL
     Route: 048
     Dates: start: 20061013
  2. PLAVIX [Concomitant]
  3. ASPIRIN [Concomitant]
  4. LOTREL [Concomitant]
  5. PREVACID [Concomitant]
  6. ZOCOR [Concomitant]
  7. TOPROL-XL [Concomitant]

REACTIONS (1)
  - DRUG INEFFECTIVE FOR UNAPPROVED INDICATION [None]
